FAERS Safety Report 15429140 (Version 2)
Quarter: 2018Q4

REPORT INFORMATION
  Report Type: Spontaneous
  Country: US (occurrence: US)
  Receive Date: 20180926
  Receipt Date: 20181001
  Transmission Date: 20190204
  Serious: No
  Sender: FDA-Public Use
  Company Number: US-PFIZER INC-2018384793

PATIENT
  Age: 9 Year
  Sex: Male

DRUGS (1)
  1. GENOTROPIN [Suspect]
     Active Substance: SOMATROPIN
     Indication: BLOOD GROWTH HORMONE
     Dosage: 2.8 MG, UNK, (6 DAYS A WEEK)
     Dates: start: 201410, end: 20180719

REACTIONS (6)
  - Sleep apnoea syndrome [Unknown]
  - Condition aggravated [Not Recovered/Not Resolved]
  - Adenoidal hypertrophy [Not Recovered/Not Resolved]
  - Acanthosis [Not Recovered/Not Resolved]
  - Weight increased [Unknown]
  - Vitamin D decreased [Unknown]
